FAERS Safety Report 6896849-6 (Version None)
Quarter: 2010Q3

REPORT INFORMATION
  Report Type: 
  Country: None (occurrence: None)
  Receive Date: 20100802
  Receipt Date: 20070213
  Transmission Date: 20110219
  Serious: No
  Sender: FDA-Public Use
  Company Number: US-PFIZER INC-2007012803

PATIENT
  Sex: Male
  Weight: 131.5 kg

DRUGS (2)
  1. LYRICA [Suspect]
     Indication: NEUROPATHY PERIPHERAL
     Dates: start: 20070101, end: 20070201
  2. OXYCODONE HCL [Interacting]
     Dates: start: 20050101

REACTIONS (3)
  - CONFUSIONAL STATE [None]
  - DRUG INTERACTION [None]
  - SEDATION [None]
